FAERS Safety Report 8444764-9 (Version None)
Quarter: 2012Q2

REPORT INFORMATION
  Report Type: 
  Country: None (occurrence: None)
  Receive Date: 20120323
  Receipt Date: 20110816
  Transmission Date: 20120825
  Serious: Yes (Other)
  Sender: FDA-Public Use
  Company Number: 163-21880-11082231

PATIENT
  Sex: Female

DRUGS (13)
  1. FEXOFENADINE (FEXOFENADINE) (TABLETS) [Concomitant]
  2. SIMVASTATIN [Concomitant]
  3. VALACYCLOVIR HYDROCHLORIDE [Concomitant]
  4. REVLIMID [Suspect]
     Indication: MULTIPLE MYELOMA
     Dosage: 5 MG, 1 IN 1 D, PO
     Route: 048
     Dates: start: 20100719, end: 20110301
  5. SEROQUEL [Concomitant]
  6. DOXIL [Suspect]
     Indication: PRODUCT USED FOR UNKNOWN INDICATION
  7. PROTONIX [Concomitant]
  8. ASPIRIN [Concomitant]
  9. LYRICA [Concomitant]
  10. CELEBREX [Concomitant]
  11. POTASSIUM CHLORIDE [Concomitant]
  12. VALTREX (VALACICLOVIR HYDROCHLORIDE) (TABLETS) [Concomitant]
  13. MOBIC [Concomitant]

REACTIONS (2)
  - PANCYTOPENIA [None]
  - NEUROPATHY PERIPHERAL [None]
